FAERS Safety Report 8913892 (Version 1)
Quarter: 2012Q4

REPORT INFORMATION
  Report Type: 
  Country: FR (occurrence: FR)
  Receive Date: 20121119
  Receipt Date: 20121119
  Transmission Date: 20130627
  Serious: Yes (Hospitalization, Other)
  Sender: FDA-Public Use
  Company Number: FR-BRISTOL-MYERS SQUIBB COMPANY-17115130

PATIENT
  Age: 11 Year
  Sex: Female

DRUGS (16)
  1. ETOPOPHOS [Suspect]
     Indication: LYMPHOCYTIC LEUKAEMIA
     Dosage: 150 mg/m2
     Route: 042
     Dates: start: 20120907, end: 20120909
  2. EVOLTRA [Suspect]
     Indication: LYMPHOCYTIC LEUKAEMIA
     Dosage: 40 mg/m2
     Dates: start: 20120907, end: 20120911
  3. ENDOXAN [Suspect]
     Indication: LYMPHOCYTIC LEUKAEMIA
     Dosage: 400 mg/m2
     Route: 042
     Dates: start: 20120907, end: 20120909
  4. TAZOCILLINE [Suspect]
     Route: 042
     Dates: start: 20120919, end: 20120921
  5. GENTAMICINE [Suspect]
     Route: 042
     Dates: start: 20120919, end: 20120921
  6. PLITICAN [Suspect]
     Route: 042
     Dates: start: 20120907, end: 20120911
  7. DEXAMETHASONE [Suspect]
     Route: 042
     Dates: start: 20120907, end: 20120911
  8. ZOPHREN [Suspect]
     Dosage: took until 30Sep2012,On 05Oct2012 restarted
     Route: 048
     Dates: start: 20120908
  9. ARACYTINE [Suspect]
     Route: 037
     Dates: start: 20120905
  10. HYDROCORTISONE [Suspect]
     Route: 037
     Dates: start: 20120905
  11. PARACETAMOL [Concomitant]
  12. TIENAM [Concomitant]
  13. CANCIDAS [Concomitant]
  14. ROVAMYCINE [Concomitant]
     Dosage: 2 doses
  15. LASILIX [Concomitant]
  16. VANCOMYCIN [Concomitant]
     Dosage: Inter on 30Sep2012, restat on 07Oct2012
     Dates: start: 20120920

REACTIONS (7)
  - Capillary leak syndrome [Recovered/Resolved]
  - Hepatocellular injury [Recovered/Resolved]
  - Pancytopenia [Recovered/Resolved]
  - Ileitis [Recovered/Resolved]
  - Pyrexia [Recovered/Resolved]
  - Diarrhoea [Recovered/Resolved]
  - Abdominal pain [Recovered/Resolved]
